FAERS Safety Report 9410076 (Version 1)
Quarter: 2013Q2

REPORT INFORMATION
  Report Type: Spontaneous
  Country: US (occurrence: US)
  Receive Date: 20130605
  Receipt Date: 20130605
  Transmission Date: 20140414
  Serious: Yes (Other)
  Sender: FDA-Public Use
  Company Number: CM13-0018

PATIENT
  Age: 74 Year
  Sex: Male

DRUGS (15)
  1. EPINEPHRINE [Suspect]
     Dates: start: 20130516
  2. BETADINE [Concomitant]
  3. PROPARACAINE [Concomitant]
  4. VIGAMOX [Concomitant]
  5. LIDOCAINE [Concomitant]
  6. PROVISC [Concomitant]
  7. BALANCE SALT SOLUTION [Concomitant]
  8. OCUCOAT [Concomitant]
  9. VALIUM [Concomitant]
  10. VERSED [Concomitant]
  11. FENTANYL [Concomitant]
  12. EYE DROPS [Concomitant]
  13. VIGAMOX [Concomitant]
  14. ILEVRO [Concomitant]
  15. DUREZOL [Concomitant]

REACTIONS (3)
  - Vision blurred [None]
  - Ocular hyperaemia [None]
  - Eye infection [None]
